FAERS Safety Report 19811225 (Version 2)
Quarter: 2021Q3

REPORT INFORMATION
  Report Type: Spontaneous
  Country: JP (occurrence: JP)
  Receive Date: 20210910
  Receipt Date: 20210910
  Transmission Date: 20211014
  Serious: Yes (Hospitalization)
  Sender: FDA-Public Use
  Company Number: JP-SUPERNUS PHARMACEUTICALS, INC.-SUP202109-001792

PATIENT
  Age: 46 Year
  Sex: Female

DRUGS (3)
  1. TOPIRAMATE. [Suspect]
     Active Substance: TOPIRAMATE
     Indication: EPILEPSY
  2. DIAZEPAM. [Concomitant]
     Active Substance: DIAZEPAM
     Indication: SEIZURE
     Dosage: NOT PROVIDED
     Route: 042
  3. LAMOTRIGINE. [Suspect]
     Active Substance: LAMOTRIGINE
     Indication: EPILEPSY

REACTIONS (8)
  - Loss of consciousness [Recovered/Resolved]
  - Nausea [Recovered/Resolved]
  - Vertigo [Recovered/Resolved]
  - Somnolence [Recovered/Resolved]
  - Extra dose administered [Unknown]
  - White blood cell count increased [Recovered/Resolved]
  - Vomiting [Recovered/Resolved]
  - Vision blurred [Recovered/Resolved]
